FAERS Safety Report 13879604 (Version 1)
Quarter: 2017Q3

REPORT INFORMATION
  Report Type: Spontaneous
  Country: US (occurrence: US)
  Receive Date: 20170814
  Receipt Date: 20170814
  Transmission Date: 20171127
  Serious: Yes (Other)
  Sender: FDA-Public Use
  Company Number: None

PATIENT
  Age: 87 Year
  Sex: Male
  Weight: 58.5 kg

DRUGS (6)
  1. LEVOFLOXCIN [Suspect]
     Active Substance: LEVOFLOXACIN
     Indication: LUNG INFECTION
     Dosage: ?          QUANTITY:7 TABLET(S);?
     Route: 048
     Dates: start: 20160718, end: 20160718
  2. FLOMAX [Concomitant]
     Active Substance: TAMSULOSIN HYDROCHLORIDE
  3. COMBIVENT [Concomitant]
     Active Substance: ALBUTEROL SULFATE\IPRATROPIUM BROMIDE
  4. LISINOP/HETZ [Concomitant]
  5. ONE-A-DAY NOS [Concomitant]
     Active Substance: MINERALS\VITAMINS
  6. VITAMIN C [Concomitant]
     Active Substance: ASCORBIC ACID

REACTIONS (6)
  - Visual impairment [None]
  - Nervous system disorder [None]
  - Pain [None]
  - Pruritus [None]
  - Dizziness [None]
  - Tendon disorder [None]

NARRATIVE: CASE EVENT DATE: 20160718
